FAERS Safety Report 6420329-5 (Version None)
Quarter: 2009Q4

REPORT INFORMATION
  Report Type: 
  Country: None (occurrence: None)
  Receive Date: 20091029
  Receipt Date: 20091015
  Transmission Date: 20100525
  Serious: Yes (Other)
  Sender: FDA-Public Use
  Company Number: GB-MYLANLABS-2009S1018151

PATIENT
  Sex: Female

DRUGS (1)
  1. AZATHIOPRINE [Suspect]
     Indication: CROHN'S DISEASE
     Dates: start: 20030101

REACTIONS (1)
  - OVARIAN LOW MALIGNANT POTENTIAL TUMOUR [None]
